FAERS Safety Report 8410803-4 (Version None)
Quarter: 2012Q2

REPORT INFORMATION
  Report Type: 
  Country: None (occurrence: None)
  Receive Date: 20120605
  Receipt Date: 20120531
  Transmission Date: 20120825
  Serious: Yes (Death, Other)
  Sender: FDA-Public Use
  Company Number: GB-SANOFI-AVENTIS-2012SA023465

PATIENT
  Age: 81 Year
  Sex: Male
  Weight: 90.4 kg

DRUGS (11)
  1. ENOXAPARIN SODIUM [Suspect]
     Route: 058
     Dates: start: 20120204, end: 20120206
  2. TIOTROPIUM BROMIDE [Concomitant]
     Route: 055
  3. ALLOPURINOL [Concomitant]
     Route: 048
  4. SIMVASTATIN [Concomitant]
     Route: 048
  5. DIGOXIN [Concomitant]
     Route: 048
  6. DABIGATRAN [Suspect]
     Indication: ATRIAL FIBRILLATION
     Route: 048
     Dates: start: 20120117, end: 20120207
  7. DABIGATRAN [Suspect]
     Route: 048
     Dates: start: 20120117, end: 20120207
  8. VERAPAMIL HCL [Concomitant]
     Route: 048
  9. QUININE SULFATE [Concomitant]
     Route: 048
  10. FUROSEMIDE [Concomitant]
     Route: 048
  11. RAMIPRIL [Concomitant]
     Route: 048

REACTIONS (8)
  - TENDONITIS [None]
  - CARDIAC FAILURE CONGESTIVE [None]
  - SEPSIS [None]
  - MYOCARDIAL ISCHAEMIA [None]
  - PNEUMONIA [None]
  - GASTROINTESTINAL HAEMORRHAGE [None]
  - DRUG ADMINISTRATION ERROR [None]
  - RENAL IMPAIRMENT [None]
